FAERS Safety Report 7725987-0 (Version None)
Quarter: 2011Q3

REPORT INFORMATION
  Report Type: 
  Country: None (occurrence: None)
  Receive Date: 20110902
  Receipt Date: 20110818
  Transmission Date: 20111222
  Serious: Yes (Other)
  Sender: FDA-Public Use
  Company Number: GB-WATSON-2011-13408

PATIENT
  Sex: Male

DRUGS (1)
  1. SIMVASTATIN [Suspect]
     Indication: PRODUCT USED FOR UNKNOWN INDICATION
     Dosage: 40 MG, UNKNOWN
     Route: 048

REACTIONS (11)
  - NAUSEA [None]
  - LACRIMATION INCREASED [None]
  - SPONTANEOUS PENILE ERECTION [None]
  - TINNITUS [None]
  - FLUSHING [None]
  - VISION BLURRED [None]
  - HYPERSENSITIVITY [None]
  - HEADACHE [None]
  - NASAL CONGESTION [None]
  - MEDICATION ERROR [None]
  - FATIGUE [None]
